FAERS Safety Report 13724914 (Version 1)
Quarter: 2017Q3

REPORT INFORMATION
  Report Type: Spontaneous
  Country: US (occurrence: US)
  Receive Date: 20170706
  Receipt Date: 20170706
  Transmission Date: 20171127
  Serious: No
  Sender: FDA-Public Use
  Company Number: US-PFIZER INC-2017285729

PATIENT
  Age: 45 Year
  Sex: Male
  Weight: 118.84 kg

DRUGS (1)
  1. CELECOXIB. [Suspect]
     Active Substance: CELECOXIB
     Indication: RHEUMATOID ARTHRITIS
     Dosage: UNK, AS NEEDED (HAS TO ALMOST TAKE 2 OF THEM )

REACTIONS (1)
  - Drug ineffective [Unknown]
